FAERS Safety Report 9714458 (Version 1)
Quarter: 2013Q4

REPORT INFORMATION
  Report Type: Spontaneous
  Country: US (occurrence: US)
  Receive Date: 20131126
  Receipt Date: 20131126
  Transmission Date: 20140711
  Serious: No
  Sender: FDA-Public Use
  Company Number: US-TEVA-446581USA

PATIENT
  Sex: Female

DRUGS (2)
  1. PARAGARD 380A [Suspect]
     Indication: CONTRACEPTION
     Route: 015
     Dates: start: 20131024, end: 20131101
  2. PARAGARD 380A [Suspect]
     Route: 015
     Dates: start: 20131101, end: 20131101

REACTIONS (2)
  - Device expulsion [Unknown]
  - Device difficult to use [Unknown]
